FAERS Safety Report 20487085 (Version 1)
Quarter: 2022Q1

REPORT INFORMATION
  Report Type: Report from Study
  Country: DE (occurrence: DE)
  Receive Date: 20220217
  Receipt Date: 20220217
  Transmission Date: 20220423
  Serious: Yes (Hospitalization, Other)
  Sender: FDA-Public Use
  Company Number: DE-ABBVIE-22K-062-4277446-00

PATIENT
  Sex: Male
  Weight: 85 kg

DRUGS (8)
  1. SKYRIZI [Suspect]
     Active Substance: RISANKIZUMAB-RZAA
     Indication: Psoriasis
     Route: 058
     Dates: start: 20200206, end: 20220114
  2. RAMIPRIL [Concomitant]
     Active Substance: RAMIPRIL
     Indication: Product used for unknown indication
  3. BEZAFIBRATE [Concomitant]
     Active Substance: BEZAFIBRATE
     Indication: Product used for unknown indication
  4. ASPIRIN [Concomitant]
     Active Substance: ASPIRIN
     Indication: Product used for unknown indication
  5. IBUPROFEN [Concomitant]
     Active Substance: IBUPROFEN
     Indication: Product used for unknown indication
  6. CALCIUM\CHOLECALCIFEROL [Concomitant]
     Active Substance: CALCIUM\CHOLECALCIFEROL
     Indication: Product used for unknown indication
     Dates: end: 202103
  7. ANORO ELLIPTA [Concomitant]
     Active Substance: UMECLIDINIUM BROMIDE\VILANTEROL TRIFENATATE
     Indication: Product used for unknown indication
     Dosage: 55/22MCG
  8. DENOSUMAB [Concomitant]
     Active Substance: DENOSUMAB
     Indication: Product used for unknown indication
     Route: 058

REACTIONS (36)
  - Lung neoplasm malignant [Unknown]
  - Squamous cell carcinoma [Not Recovered/Not Resolved]
  - Obesity [Unknown]
  - Acquired diaphragmatic eventration [Unknown]
  - Joint range of motion decreased [Unknown]
  - Joint range of motion decreased [Unknown]
  - Pain [Unknown]
  - Varicose vein [Unknown]
  - Granulocytes abnormal [Unknown]
  - Lymphocyte count decreased [Unknown]
  - Lymphoma [Unknown]
  - Hepatic steatosis [Unknown]
  - Renal cyst [Unknown]
  - Thyroid cyst [Unknown]
  - Bronchitis chronic [Unknown]
  - Carbon dioxide increased [Unknown]
  - Expiratory reserve volume decreased [Unknown]
  - Pulmonary mass [Unknown]
  - Metabolic disorder [Unknown]
  - Lung disorder [Unknown]
  - Bronchial carcinoma [Unknown]
  - Bronchitis chronic [Unknown]
  - Fatigue [Unknown]
  - Hypoventilation [Unknown]
  - Thoracic vertebral fracture [Unknown]
  - Hypercalcaemia [Unknown]
  - Cardiopulmonary exercise test abnormal [Unknown]
  - Pneumothorax [Unknown]
  - Psoriasis [Unknown]
  - Osteoporosis [Unknown]
  - Dyspnoea exertional [Unknown]
  - Restrictive pulmonary disease [Unknown]
  - Muscular weakness [Unknown]
  - Prostatic disorder [Unknown]
  - Prostatomegaly [Unknown]
  - Gamma-glutamyltransferase increased [Unknown]

NARRATIVE: CASE EVENT DATE: 20210303
